FAERS Safety Report 16323850 (Version 1)
Quarter: 2019Q2

REPORT INFORMATION
  Report Type: Spontaneous
  Country: US (occurrence: US)
  Receive Date: 20190411
  Receipt Date: 20190411
  Transmission Date: 20190711
  Serious: No
  Sender: FDA-Public Use
  Company Number: None

PATIENT
  Age: 59 Year
  Sex: Male

DRUGS (2)
  1. REPATHA [Suspect]
     Active Substance: EVOLOCUMAB
     Indication: HYPERLIPIDAEMIA
     Dosage: INJECT 140MG (1 PEN) SUBCUTANEOUSLY EVERY 2WEEKS AS DIRECTED
     Route: 058
     Dates: start: 201710
  2. REPATHA [Suspect]
     Active Substance: EVOLOCUMAB
     Indication: ARTERIOSCLEROSIS
     Dosage: INJECT 140MG (1 PEN) SUBCUTANEOUSLY EVERY 2WEEKS AS DIRECTED
     Route: 058
     Dates: start: 201710

REACTIONS (1)
  - Headache [None]
